FAERS Safety Report 5311343-1 (Version None)
Quarter: 2007Q2

REPORT INFORMATION
  Report Type: 
  Country: None (occurrence: None)
  Receive Date: 20070426
  Receipt Date: 20070426
  Transmission Date: 20071010
  Serious: Yes (Other)
  Sender: FDA-Public Use
  Company Number: None

PATIENT
  Sex: Male
  Weight: 75 kg

DRUGS (17)
  1. LISINOPRIL AND HYDROCHLOROTHIAZIDE [Suspect]
     Indication: HYPERTENSION
     Dosage: 10/12.5MG PO QDAY
     Route: 048
     Dates: start: 20060628, end: 20060807
  2. NAPROXEN [Suspect]
     Indication: BACK PAIN
     Dosage: 500MG BID
     Dates: start: 20061030
  3. ABACAVIR SULFATE LAMIVUDINE AND ZIDOVUDINE [Concomitant]
  4. ACYCLOVIR [Concomitant]
  5. AMITRIPTYLINE HCL [Concomitant]
  6. CAMPHOR/MENTHOL [Concomitant]
  7. CLINDAMYCIN [Concomitant]
  8. DRONABINOL [Concomitant]
  9. FORMOTEROL FUMARATE [Concomitant]
  10. HYDROXYZINE PAMOATE [Concomitant]
  11. IPRATROPIUM BR [Concomitant]
  12. LEVALBUTEROL TART [Concomitant]
  13. LOPINAVIR/RITONAVIR [Concomitant]
  14. NAPROXEN [Concomitant]
  15. NICOTINE [Concomitant]
  16. TRAZODONE HCL [Concomitant]
  17. TRIAMCINOLONE [Concomitant]

REACTIONS (5)
  - DERMOGRAPHISM [None]
  - PRURITUS [None]
  - RASH [None]
  - RASH MORBILLIFORM [None]
  - SCROTAL IRRITATION [None]
